FAERS Safety Report 20859000 (Version 2)
Quarter: 2022Q2

REPORT INFORMATION
  Report Type: Spontaneous
  Country: GB (occurrence: GB)
  Receive Date: 20220523
  Receipt Date: 20220604
  Transmission Date: 20220721
  Serious: Yes (Life-Threatening, Hospitalization, Other)
  Sender: FDA-Public Use
  Company Number: GB-MHRA-MED-202205091943221360-IPXQX

PATIENT
  Age: 20 Year
  Sex: Female
  Weight: 83 kg

DRUGS (3)
  1. TOPIRAMATE [Suspect]
     Active Substance: TOPIRAMATE
     Indication: Idiopathic intracranial hypertension
     Dosage: 25 MILLIGRAM
     Route: 065
     Dates: start: 20220405, end: 20220410
  2. SERTRALINE [Concomitant]
     Active Substance: SERTRALINE HYDROCHLORIDE
     Indication: Anxiety
     Dosage: UNK
     Route: 065
     Dates: start: 20170609
  3. SERTRALINE [Concomitant]
     Active Substance: SERTRALINE HYDROCHLORIDE
     Indication: Anxiety

REACTIONS (4)
  - Condition aggravated [Unknown]
  - Feeling abnormal [Recovering/Resolving]
  - Suicide attempt [Not Recovered/Not Resolved]
  - Medication error [Unknown]

NARRATIVE: CASE EVENT DATE: 20220405
